FAERS Safety Report 5313962-5 (Version None)
Quarter: 2007Q2

REPORT INFORMATION
  Report Type: 
  Country: None (occurrence: None)
  Receive Date: 20070501
  Receipt Date: 20070419
  Transmission Date: 20071010
  Serious: Yes (Other)
  Sender: FDA-Public Use
  Company Number: CA-PFIZER INC-2006103185

PATIENT
  Sex: Female

DRUGS (7)
  1. LIPITOR [Suspect]
     Indication: BLOOD CHOLESTEROL INCREASED
     Route: 048
  2. NOVASEN [Concomitant]
     Route: 048
  3. ZESTRIL [Concomitant]
     Route: 048
  4. PANTOPRAZOLE [Concomitant]
  5. CLONAZEPAM [Concomitant]
     Route: 048
  6. SERTRALINE [Concomitant]
     Route: 048
  7. AMITRIPTYLINE HCL [Concomitant]
     Route: 048

REACTIONS (4)
  - BACK PAIN [None]
  - CEREBROVASCULAR ACCIDENT [None]
  - MYALGIA [None]
  - TOOTH EXTRACTION [None]
